FAERS Safety Report 9009450 (Version 1)
Quarter: 2013Q1

REPORT INFORMATION
  Report Type: Spontaneous
  Country: US (occurrence: US)
  Receive Date: 20130112
  Receipt Date: 20130112
  Transmission Date: 20140127
  Serious: Yes (Death, Other)
  Sender: FDA-Public Use
  Company Number: US-009507513-1301USA001757

PATIENT
  Sex: Female

DRUGS (2)
  1. MONTELUKAST SODIUM [Suspect]
     Indication: HYPERSENSITIVITY
  2. ZYRTEC [Suspect]

REACTIONS (1)
  - Drug effect decreased [Fatal]
